FAERS Safety Report 19796224 (Version 2)
Quarter: 2024Q3

REPORT INFORMATION
  Report Type: Spontaneous
  Country: JP (occurrence: JP)
  Receive Date: 20210907
  Receipt Date: 20240904
  Transmission Date: 20241017
  Serious: Yes (Other)
  Sender: ELI LILLY AND CO
  Company Number: JP-MERCK HEALTHCARE KGAA-9261508

PATIENT
  Age: 71 Year
  Sex: Male

DRUGS (8)
  1. ERBITUX [Suspect]
     Active Substance: CETUXIMAB
     Indication: Tongue neoplasm malignant stage unspecified
     Dosage: INFUSION OVER 2 HOURS, ADMINISTERED IN 1-1, 1-2, 1-3,2-1, 2-2, AND 2-3
     Route: 041
  2. ERBITUX [Suspect]
     Active Substance: CETUXIMAB
     Dosage: ADMINISTERED IN 1-1, 1-2, 1-3, 2-1, 2-2, AND 2-3
     Route: 041
  3. PACLITAXEL [Concomitant]
     Active Substance: PACLITAXEL
     Indication: Tongue neoplasm malignant stage unspecified
     Dosage: INFUSION OVER 1 HOUR, 1-1, 1-2, 2-1, AND 2-2
     Route: 042
  4. CARBOPLATIN [Concomitant]
     Active Substance: CARBOPLATIN
     Indication: Tongue neoplasm malignant stage unspecified
     Dosage: AREA UNDER THE CURVE (AUC) 2.0. INFUSION OVER 1 HOUR. ADMINISTERED IN 1-1, 1-2, 2-1, AND 2-2
     Route: 042
  5. DEXAMETHASONE [Concomitant]
     Active Substance: DEXAMETHASONE
     Indication: Premedication
     Dosage: OVER 15 MINUTES
     Route: 041
  6. FAMOTIDINE [Concomitant]
     Active Substance: FAMOTIDINE
     Indication: Premedication
     Dosage: OVER 15 MINUTES
     Route: 041
  7. GRANISETRON [Concomitant]
     Active Substance: GRANISETRON
     Indication: Premedication
     Dosage: OVER 15 MINUTES
     Route: 041
  8. CHLORPHENIRAMINE [Concomitant]
     Active Substance: CHLORPHENIRAMINE
     Indication: Premedication
     Dosage: OVER 15 MINUTES
     Route: 041

REACTIONS (2)
  - Renal impairment [Unknown]
  - Neutrophil count decreased [Unknown]
